FAERS Safety Report 5136553-8 (Version None)
Quarter: 2006Q4

REPORT INFORMATION
  Report Type: 
  Country: None (occurrence: None)
  Receive Date: 20061023
  Receipt Date: 20061010
  Transmission Date: 20070319
  Serious: Yes (Hospitalization, Other)
  Sender: FDA-Public Use
  Company Number: 2006123947

PATIENT
  Age: 67 Year
  Sex: Female
  Weight: 100.7 kg

DRUGS (20)
  1. XANAX [Suspect]
  2. ALL  OTHER THERAPEUTIC PRODUCTS (ALL OTHER THERAPEUTIC PRODUCTS) [Suspect]
     Indication: ACUTE MYELOID LEUKAEMIA
     Dosage: 1200 MG, ORAL
     Route: 048
     Dates: start: 20020725, end: 20020924
  3. ALL  OTHER THERAPEUTIC PRODUCTS (ALL OTHER THERAPEUTIC PRODUCTS) [Suspect]
     Indication: ACUTE MYELOID LEUKAEMIA
     Dosage: 1200 MG, ORAL
     Route: 048
     Dates: start: 20020925
  4. ATIVAN [Suspect]
  5. OXYCODONE HCL [Suspect]
  6. ITRACONAZOLE [Suspect]
  7. ZOLOFT [Concomitant]
  8. ACYCLOVIR [Concomitant]
  9. ZOSYN [Concomitant]
  10. MYCELEX [Concomitant]
  11. DIFLUCAN [Concomitant]
  12. PANTOPRAZOLE SODIUM [Concomitant]
  13. FLOVENT [Concomitant]
  14. GLYBURIDE [Concomitant]
  15. IMDUR [Concomitant]
  16. LISINOPRIL [Concomitant]
  17. METOPROLOL TARTRATE [Concomitant]
  18. NORVASC [Concomitant]
  19. PREVACID [Concomitant]
  20. SYNTHROID [Concomitant]

REACTIONS (15)
  - CATHETER RELATED INFECTION [None]
  - CONFUSIONAL STATE [None]
  - COORDINATION ABNORMAL [None]
  - DRUG INTERACTION [None]
  - DYSPNOEA [None]
  - FALL [None]
  - FEBRILE NEUTROPENIA [None]
  - GAIT DISTURBANCE [None]
  - HEADACHE [None]
  - MALAISE [None]
  - OEDEMA PERIPHERAL [None]
  - PNEUMONIA [None]
  - PYREXIA [None]
  - RASH [None]
  - SINUS DISORDER [None]
